FAERS Safety Report 10222277 (Version 1)
Quarter: 2014Q2

REPORT INFORMATION
  Report Type: Spontaneous
  Country: IT (occurrence: IT)
  Receive Date: 20140606
  Receipt Date: 20140606
  Transmission Date: 20141212
  Serious: Yes (Other)
  Sender: FDA-Public Use
  Company Number: IT-GLAXOSMITHKLINE-B1000620A

PATIENT
  Age: 51 Year
  Sex: Female

DRUGS (4)
  1. VOTRIENT [Suspect]
     Indication: RENAL CANCER
     Route: 065
     Dates: start: 20140319, end: 20140418
  2. NORVASC [Concomitant]
     Indication: HYPERTENSION
     Dosage: 400MG PER DAY
  3. ESKIM [Concomitant]
     Dosage: 100MG PER DAY
     Route: 048
  4. EVION [Concomitant]
     Route: 048

REACTIONS (4)
  - Asthenia [Recovered/Resolved]
  - Diarrhoea [Recovered/Resolved]
  - Gingivitis [Recovered/Resolved]
  - Musculoskeletal pain [Recovered/Resolved]
